FAERS Safety Report 9809158 (Version 1)
Quarter: 2014Q1

REPORT INFORMATION
  Report Type: Spontaneous
  Country: US (occurrence: US)
  Receive Date: 20140110
  Receipt Date: 20140110
  Transmission Date: 20141002
  Serious: Yes (Death)
  Sender: FDA-Public Use
  Company Number: US-PFIZER INC-2014005180

PATIENT
  Age: 50 Year
  Sex: Female

DRUGS (4)
  1. IBUPROFEN [Suspect]
  2. BUPROPION [Suspect]
  3. DULOXETINE [Suspect]
  4. DIPHENHYDRAMINE [Suspect]

REACTIONS (1)
  - Completed suicide [Fatal]
